FAERS Safety Report 11077782 (Version 3)
Quarter: 2015Q3

REPORT INFORMATION
  Report Type: Spontaneous
  Country: IT (occurrence: IT)
  Receive Date: 20150430
  Receipt Date: 20150923
  Transmission Date: 20151125
  Serious: Yes (Hospitalization)
  Sender: FDA-Public Use
  Company Number: IT-AUROBINDO-AUR-APL-2015-03678

PATIENT
  Age: 70 Year
  Sex: Female

DRUGS (5)
  1. FISIOTENS [Concomitant]
     Indication: PRODUCT USED FOR UNKNOWN INDICATION
     Dosage: UNK
     Route: 065
  2. METFORMIN [Suspect]
     Active Substance: METFORMIN HYDROCHLORIDE
     Indication: DIABETES MELLITUS
     Dosage: 2550 MG, DAILY
     Route: 048
  3. BYDUREON [Suspect]
     Active Substance: EXENATIDE
     Indication: DIABETES MELLITUS
     Dosage: 2 MG, EVERY WEEK
     Route: 058
  4. HYDROCHLOROTHIAZIDE. [Suspect]
     Active Substance: HYDROCHLOROTHIAZIDE
     Indication: PRODUCT USED FOR UNKNOWN INDICATION
     Dosage: UNK
     Route: 048
  5. HYDROCHLOROTHIAZIDE W/OLMESARTAN [Concomitant]
     Active Substance: HYDROCHLOROTHIAZIDE\OLMESARTAN MEDOXOMIL
     Indication: PRODUCT USED FOR UNKNOWN INDICATION
     Dosage: UNK
     Route: 065

REACTIONS (5)
  - Vomiting [Recovered/Resolved]
  - Nausea [Recovered/Resolved]
  - Acute kidney injury [Recovered/Resolved]
  - Diarrhoea [Recovered/Resolved]
  - Anuria [Recovered/Resolved]

NARRATIVE: CASE EVENT DATE: 20150401
